FAERS Safety Report 15831839 (Version 4)
Quarter: 2025Q3

REPORT INFORMATION
  Report Type: Report from Study
  Country: EU (occurrence: EU)
  Receive Date: 20190116
  Receipt Date: 20250804
  Transmission Date: 20251020
  Serious: Yes (Hospitalization, Other)
  Sender: NOVARTIS
  Company Number: PHHY2018DE036552

PATIENT
  Age: 79 Year
  Sex: Female
  Weight: 65 kg

DRUGS (20)
  1. DESFERAL [Suspect]
     Active Substance: DEFEROXAMINE MESYLATE
     Indication: Myelodysplastic syndrome
     Route: 042
     Dates: start: 20180424
  2. EXJADE [Suspect]
     Active Substance: DEFERASIROX
     Indication: Myelodysplastic syndrome
     Route: 042
     Dates: start: 20180319, end: 20180322
  3. EXJADE [Suspect]
     Active Substance: DEFERASIROX
     Route: 042
     Dates: start: 20180323, end: 20180326
  4. PANTOZOL [Concomitant]
     Active Substance: PANTOPRAZOLE SODIUM
     Indication: Prophylaxis
     Dosage: 40 MG, QD 1X1
     Route: 048
     Dates: start: 201712, end: 20180101
  5. PANTOZOL [Concomitant]
     Active Substance: PANTOPRAZOLE SODIUM
     Dosage: 20 MG, QD 1X1
     Route: 048
     Dates: start: 20180102
  6. MOVICOL [Concomitant]
     Active Substance: POLYETHYLENE GLYCOL 3350\POTASSIUM CHLORIDE\SODIUM BICARBONATE\SODIUM CHLORIDE
     Indication: Prophylaxis
     Route: 065
     Dates: start: 201712, end: 20180221
  7. Aescusan [Concomitant]
     Indication: Prophylaxis
     Dosage: 40 MG, BID 1X2
     Route: 048
  8. RAMIPRIL [Concomitant]
     Active Substance: RAMIPRIL
     Indication: Hypertension
     Dosage: 2,5 MG, QD 1X1
     Route: 065
     Dates: start: 20171218
  9. ALLOPURINOL [Concomitant]
     Active Substance: ALLOPURINOL
     Indication: Prophylaxis
     Dosage: 300 MG, QD
     Route: 048
     Dates: start: 20171218, end: 20180101
  10. ALLOPURINOL [Concomitant]
     Active Substance: ALLOPURINOL
     Dosage: 100 MG, QD
     Route: 048
     Dates: start: 20180102
  11. LACTULOSE [Concomitant]
     Active Substance: LACTULOSE
     Indication: Prophylaxis
     Route: 048
     Dates: start: 20180222
  12. Cytarabine;Daunorubicin hydrochloride;Etoposide [Concomitant]
     Indication: Myelodysplastic syndrome
     Dosage: 1 DF, QD
     Route: 065
     Dates: start: 20171221, end: 20171223
  13. Cytarabine;Daunorubicin hydrochloride;Etoposide [Concomitant]
     Indication: Acute myeloid leukaemia
  14. VIDAZA [Concomitant]
     Active Substance: AZACITIDINE
     Indication: Myelodysplastic syndrome
     Route: 065
     Dates: start: 20171225, end: 20181026
  15. VIDAZA [Concomitant]
     Active Substance: AZACITIDINE
     Indication: Acute myeloid leukaemia
  16. DIMETHINDENE [Concomitant]
     Active Substance: DIMETHINDENE
     Indication: Prophylaxis
     Route: 065
     Dates: start: 20180130
  17. METOCLOPRAMIDE [Concomitant]
     Active Substance: METOCLOPRAMIDE
     Indication: Prophylaxis
     Dosage: 30 MG, TID
     Route: 065
     Dates: start: 20180102
  18. ONDANSETRON [Concomitant]
     Active Substance: ONDANSETRON
     Indication: Prophylaxis
     Dosage: 16 MG, BID
     Route: 065
     Dates: start: 20180102
  19. Commiphora myrrha tincture [Concomitant]
     Indication: Mucosal inflammation
     Route: 065
     Dates: start: 20180219
  20. AZACITIDINE [Concomitant]
     Active Substance: AZACITIDINE
     Indication: Product used for unknown indication
     Route: 065

REACTIONS (16)
  - Klebsiella infection [Recovered/Resolved]
  - Dysuria [Recovered/Resolved]
  - Diarrhoea [Recovered/Resolved]
  - Myelodysplastic syndrome [Recovered/Resolved]
  - Malignant neoplasm progression [Recovered/Resolved]
  - Urinary tract infection [Recovered/Resolved]
  - Urinary tract infection [Recovered/Resolved]
  - Urinary tract infection [Recovered/Resolved]
  - Alanine aminotransferase increased [Recovered/Resolved]
  - Liver injury [Unknown]
  - Nausea [Unknown]
  - Fatigue [Unknown]
  - Infection [Recovered/Resolved]
  - Stomatitis [Recovering/Resolving]
  - Headache [Unknown]
  - Drug intolerance [Unknown]

NARRATIVE: CASE EVENT DATE: 20180619
